FAERS Safety Report 5170395-2 (Version None)
Quarter: 2006Q4

REPORT INFORMATION
  Report Type: 
  Country: None (occurrence: None)
  Receive Date: 20061204
  Receipt Date: 20061127
  Transmission Date: 20070319
  Serious: Yes (Death, Hospitalization, Other)
  Sender: FDA-Public Use
  Company Number: 2006060681

PATIENT
  Age: 45 Year
  Sex: Male
  Weight: 77 kg

DRUGS (7)
  1. SOLU-MEDROL [Suspect]
     Indication: HODGKIN'S DISEASE
     Dosage: (237 MG, CYCLICAL), INTRAVENOUS
     Route: 042
     Dates: start: 20051102, end: 20060101
  2. DACARBAZINE [Suspect]
     Indication: HODGKIN'S DISEASE
     Dosage: (710 MG, CYCLICAL), INTRAVENOUS
     Route: 042
     Dates: start: 19960101, end: 20060223
  3. POLARAMINE [Suspect]
     Dosage: (5 MG, CYCLICICAL), INTRAVENOUS
     Route: 042
     Dates: start: 20051102, end: 20060223
  4. VINCRISTINE [Suspect]
     Indication: HODGKIN'S DISEASE
     Dosage: (11 MG, CYCLICAL), INTRAVENOUS
     Route: 042
     Dates: start: 19960101, end: 20060223
  5. DOXORUBICIN HCL [Suspect]
     Indication: HODGKIN'S DISEASE
     Dosage: (48 MG, CYCLICAL), INTRAVENOUS
     Route: 042
     Dates: start: 19960101, end: 20060223
  6. BLEOMYCIN [Suspect]
     Indication: HODGKIN'S DISEASE
     Dosage: (19 MG, CYCLICAL), INTRAVENOUS
     Route: 042
     Dates: start: 19960101, end: 20060223
  7. DEXAMETHASONE TAB [Concomitant]

REACTIONS (3)
  - BRONCHIECTASIS [None]
  - INTERSTITIAL LUNG DISEASE [None]
  - PULMONARY FIBROSIS [None]
